FAERS Safety Report 19788471 (Version 1)
Quarter: 2021Q3

REPORT INFORMATION
  Report Type: Spontaneous
  Country: CN (occurrence: CN)
  Receive Date: 20210903
  Receipt Date: 20210903
  Transmission Date: 20211014
  Serious: Yes (Other)
  Sender: FDA-Public Use
  Company Number: CN-TAKEDA-2021TUS053446

PATIENT
  Age: 74 Year
  Sex: Male
  Weight: 45 kg

DRUGS (1)
  1. FLEXBUMIN [Suspect]
     Active Substance: ALBUMIN HUMAN
     Indication: COLON CANCER
     Dosage: 10 GRAM, QD
     Route: 041
     Dates: start: 20210720, end: 20210723

REACTIONS (3)
  - Dyspnoea [Recovering/Resolving]
  - Peripheral coldness [Recovering/Resolving]
  - Chills [Recovering/Resolving]

NARRATIVE: CASE EVENT DATE: 20210721
